FAERS Safety Report 23098230 (Version 4)
Quarter: 2024Q1

REPORT INFORMATION
  Report Type: Spontaneous
  Country: JP (occurrence: JP)
  Receive Date: 20231023
  Receipt Date: 20240122
  Transmission Date: 20240409
  Serious: Yes (Other)
  Sender: FDA-Public Use
  Company Number: JP-ONO-2023JP025850

PATIENT
  Age: 58 Year
  Sex: Female

DRUGS (2)
  1. OPDIVO [Suspect]
     Active Substance: NIVOLUMAB
     Indication: Head and neck cancer
     Route: 041
     Dates: start: 20230911
  2. OPDIVO [Suspect]
     Active Substance: NIVOLUMAB
     Route: 041
     Dates: start: 20231109

REACTIONS (8)
  - Graves^ disease [Recovering/Resolving]
  - Thyroid stimulating immunoglobulin [Unknown]
  - Thyroiditis [Recovered/Resolved]
  - Tri-iodothyronine free abnormal [Unknown]
  - Thyroxine free abnormal [Unknown]
  - Blood thyroid stimulating hormone decreased [Unknown]
  - Palpitations [Unknown]
  - Off label use [Unknown]

NARRATIVE: CASE EVENT DATE: 20230911
